FAERS Safety Report 7157488-5 (Version None)
Quarter: 2010Q4

REPORT INFORMATION
  Report Type: 
  Country: None (occurrence: None)
  Receive Date: 20101214
  Receipt Date: 20101203
  Transmission Date: 20110411
  Serious: Yes (Hospitalization)
  Sender: FDA-Public Use
  Company Number: US-ASTRAZENECA-2010SE57552

PATIENT
  Age: 79 Year
  Sex: Female
  Weight: 52.6 kg

DRUGS (3)
  1. NEXIUM [Suspect]
     Route: 048
     Dates: start: 20060101, end: 20060101
  2. PRILOSEC OTC [Suspect]
     Dosage: DAILY
     Route: 048
     Dates: start: 20060101, end: 20060101
  3. PRILOSEC [Suspect]
     Route: 048
     Dates: start: 20060101

REACTIONS (3)
  - CORONARY ARTERY BYPASS [None]
  - DRUG INEFFECTIVE [None]
  - PRURITUS GENERALISED [None]
